FAERS Safety Report 5118347-2 (Version None)
Quarter: 2006Q4

REPORT INFORMATION
  Report Type: 
  Country: None (occurrence: None)
  Receive Date: 20061002
  Receipt Date: 20060222
  Transmission Date: 20070319
  Serious: Yes (Other)
  Sender: FDA-Public Use
  Company Number: FRWYE421822FEB06

PATIENT
  Age: 50 Year
  Sex: Male

DRUGS (3)
  1. ENBREL [Suspect]
     Indication: PSORIATIC ARTHROPATHY
     Route: 058
     Dates: start: 20050101, end: 20060201
  2. ENBREL [Suspect]
     Route: 058
     Dates: start: 20050101, end: 20060101
  3. ENBREL [Suspect]
     Route: 058
     Dates: start: 20060101, end: 20060201

REACTIONS (4)
  - BLOOD THYROID STIMULATING HORMONE DECREASED [None]
  - CONDITION AGGRAVATED [None]
  - DRUG INEFFECTIVE [None]
  - ERYTHRODERMIC PSORIASIS [None]
